FAERS Safety Report 19970338 (Version 2)
Quarter: 2021Q4

REPORT INFORMATION
  Report Type: Spontaneous
  Country: GB (occurrence: GB)
  Receive Date: 20211020
  Receipt Date: 20211028
  Transmission Date: 20220303
  Serious: Yes (Other)
  Sender: FDA-Public Use
  Company Number: GB-GLAXOSMITHKLINE-GB2021EME203607

PATIENT
  Sex: Male

DRUGS (5)
  1. ACYCLOVIR [Suspect]
     Active Substance: ACYCLOVIR
     Indication: Product used for unknown indication
     Dosage: 800 MILLIGRAM, FOUR TIMES/DAY
     Route: 065
  2. ACYCLOVIR [Suspect]
     Active Substance: ACYCLOVIR
     Dosage: 400 MILLIGRAM
     Route: 065
     Dates: start: 202103
  3. ACYCLOVIR [Suspect]
     Active Substance: ACYCLOVIR
     Indication: Product used for unknown indication
     Dosage: UNK
     Route: 065
  4. ACYCLOVIR [Suspect]
     Active Substance: ACYCLOVIR
     Indication: Product used for unknown indication
     Dosage: UNK
     Route: 065
     Dates: start: 2017
  5. ZOVIRAX [Suspect]
     Active Substance: ACYCLOVIR
     Indication: Product used for unknown indication
     Dosage: UNK
     Route: 065

REACTIONS (16)
  - Brain injury [Unknown]
  - Intentional self-injury [Unknown]
  - Idiosyncratic drug reaction [Unknown]
  - Malaise [Unknown]
  - Visual impairment [Unknown]
  - Conjunctivitis [Unknown]
  - Personality change [Unknown]
  - Aggression [Recovering/Resolving]
  - Abnormal behaviour [Unknown]
  - Head injury [Unknown]
  - Drug interaction [Unknown]
  - Adverse drug reaction [Unknown]
  - Eye disorder [Unknown]
  - Therapy cessation [Unknown]
  - Pre-existing condition improved [Recovering/Resolving]
  - Drug ineffective [Unknown]
